FAERS Safety Report 11252105 (Version 1)
Quarter: 2015Q3

REPORT INFORMATION
  Report Type: Spontaneous
  Country: US (occurrence: US)
  Receive Date: 20150708
  Receipt Date: 20150708
  Transmission Date: 20151125
  Serious: No
  Sender: FDA-Public Use
  Company Number: US-ELI_LILLY_AND_COMPANY-US201303008323

PATIENT
  Age: 58 Year
  Sex: Male

DRUGS (3)
  1. ACAMPROSATE CALCIUM. [Concomitant]
     Active Substance: ACAMPROSATE CALCIUM
     Indication: ALCOHOL WITHDRAWAL SYNDROME
     Dosage: 666 MG, TID
  2. PROZAC [Suspect]
     Active Substance: FLUOXETINE HYDROCHLORIDE
     Indication: DEPRESSION
     Dosage: 40 MG, QD
  3. CAFFEINE. [Concomitant]
     Active Substance: CAFFEINE
     Dosage: 1 DF, UNKNOWN

REACTIONS (2)
  - Impulsive behaviour [Unknown]
  - Hypomania [Unknown]
